FAERS Safety Report 19771636 (Version 2)
Quarter: 2022Q2

REPORT INFORMATION
  Report Type: Spontaneous
  Country: US (occurrence: US)
  Receive Date: 20210901
  Receipt Date: 20220503
  Transmission Date: 20220720
  Serious: No
  Sender: FDA-Public Use
  Company Number: US-PFIZER INC-2020005737

PATIENT
  Age: 77 Year
  Sex: Female

DRUGS (2)
  1. LYRICA [Suspect]
     Active Substance: PREGABALIN
     Indication: Diabetic neuropathy
     Dosage: 150 MG, AS NEEDED (1 CAPSULE BY MOUTH TWICE A DAY AS NEEDED FOR DIABETIC NEUROPATHY)
     Route: 048
  2. LYRICA [Suspect]
     Active Substance: PREGABALIN
     Dosage: 75 MG, 2X/DAY (AS NEEDED)
     Route: 048

REACTIONS (5)
  - Product use issue [Unknown]
  - Off label use [Unknown]
  - Product prescribing error [Unknown]
  - Pain in extremity [Unknown]
  - Product packaging difficult to open [Unknown]
